FAERS Safety Report 8186957-4 (Version None)
Quarter: 2012Q1

REPORT INFORMATION
  Report Type: 
  Country: None (occurrence: None)
  Receive Date: 20120306
  Receipt Date: 20120301
  Transmission Date: 20120608
  Serious: Yes (Other)
  Sender: FDA-Public Use
  Company Number: US-PFIZER INC-2012055909

PATIENT
  Sex: Female
  Weight: 53.515 kg

DRUGS (1)
  1. PREMARIN [Suspect]
     Indication: VULVOVAGINAL DRYNESS
     Dosage: UNK, AS NEEDED
     Route: 067
     Dates: start: 20101101, end: 20111101

REACTIONS (6)
  - CEREBROVASCULAR ACCIDENT [None]
  - DEMENTIA [None]
  - CHEST PAIN [None]
  - DIZZINESS [None]
  - DYSPNOEA [None]
  - VISUAL IMPAIRMENT [None]
